FAERS Safety Report 6677531-7 (Version None)
Quarter: 2010Q2

REPORT INFORMATION
  Report Type: 
  Country: None (occurrence: None)
  Receive Date: 20100412
  Receipt Date: 20100127
  Transmission Date: 20101027
  Serious: Yes (Hospitalization)
  Sender: FDA-Public Use
  Company Number: US-ALEXION-A201000064

PATIENT
  Sex: Female

DRUGS (7)
  1. SOLIRIS [Suspect]
     Indication: PAROXYSMAL NOCTURNAL HAEMOGLOBINURIA
     Dosage: 600 MG, UNK
     Route: 042
     Dates: start: 20050810
  2. SOLIRIS [Suspect]
     Dosage: 900 MG, Q2W
     Route: 042
     Dates: start: 20070515
  3. FOLIC ACID [Concomitant]
     Dosage: UNK
     Route: 048
  4. CENTRUM                            /00554501/ [Concomitant]
     Dosage: UNK
     Route: 048
  5. CALCIUM [Concomitant]
     Dosage: UNK
     Route: 048
  6. MIDOL                              /00095101/ [Concomitant]
     Dosage: UNK
     Route: 048
  7. TYLENOL (CAPLET) [Concomitant]
     Dosage: UNK
     Route: 048

REACTIONS (9)
  - BODY TEMPERATURE INCREASED [None]
  - CHROMATURIA [None]
  - COUGH [None]
  - FEELING ABNORMAL [None]
  - HAEMOGLOBIN DECREASED [None]
  - MALAISE [None]
  - NAUSEA [None]
  - PRODUCTIVE COUGH [None]
  - VIRAL INFECTION [None]
